FAERS Safety Report 13239439 (Version 1)
Quarter: 2017Q1

REPORT INFORMATION
  Report Type: Spontaneous
  Country: US (occurrence: US)
  Receive Date: 20170216
  Receipt Date: 20170216
  Transmission Date: 20170428
  Serious: Yes (Hospitalization)
  Sender: FDA-Public Use
  Company Number: US-B.I. PHARMACEUTICALS,INC./RIDGEFIELD-2017-BI-007830

PATIENT
  Age: 56 Year
  Sex: Female

DRUGS (23)
  1. VITAMIN D [Concomitant]
     Active Substance: CHOLECALCIFEROL
     Indication: VITAMIN D DECREASED
     Dosage: BID;  FORM STRENGTH: 5000UNITS
     Route: 048
     Dates: start: 2009
  2. CLARITHROMYCIN. [Concomitant]
     Active Substance: CLARITHROMYCIN
     Indication: HISTOPLASMOSIS
     Dosage: BID;  FORM STRENGTH: 500MG
     Route: 048
     Dates: start: 201611
  3. PAXIL [Concomitant]
     Active Substance: PAROXETINE HYDROCHLORIDE
     Indication: DEPRESSION
     Dosage: QD;  FORM STRENGTH: 40MG
     Route: 048
     Dates: start: 2016
  4. TALWIN [Concomitant]
     Active Substance: PENTAZOCINE LACTATE
     Indication: BACK PAIN
     Route: 048
     Dates: start: 2009
  5. IPRATROPIUM [Concomitant]
     Active Substance: IPRATROPIUM
     Indication: ASTHMA
     Dosage: AS NEEDED;  FORM STRENGTH: 0.5/3MG(2.5MG/3ML)
     Route: 055
     Dates: start: 2012
  6. IPRATROPIUM [Concomitant]
     Active Substance: IPRATROPIUM
     Indication: BRONCHITIS CHRONIC
  7. METFORMIN [Concomitant]
     Active Substance: METFORMIN HYDROCHLORIDE
     Indication: TYPE 2 DIABETES MELLITUS
     Dosage: QD;  FORM STRENGTH: 500MG
     Route: 048
     Dates: start: 2013
  8. PROAIR HFA [Concomitant]
     Active Substance: ALBUTEROL SULFATE
     Indication: ASTHMA
     Dosage: 2 PUFFS QID AS NEEDED FOR SHORTNESS OF BREATH;
     Route: 055
     Dates: start: 2010
  9. POTASSIUM CITRATE. [Concomitant]
     Active Substance: POTASSIUM CITRATE
     Indication: PRODUCT USED FOR UNKNOWN INDICATION
     Dosage: BID;  FORM STRENGTH: 15MEQ
     Route: 048
     Dates: start: 2016
  10. ZANTAC [Concomitant]
     Active Substance: RANITIDINE HYDROCHLORIDE
     Indication: GASTRIC DISORDER
     Dosage: QD;  FORM STRENGTH: 300MG
     Route: 048
     Dates: start: 2014
  11. FLECAINIDE ACETATE. [Concomitant]
     Active Substance: FLECAINIDE ACETATE
     Indication: HYPERTENSION
  12. SPIRIVA [Suspect]
     Active Substance: TIOTROPIUM BROMIDE MONOHYDRATE
     Indication: BRONCHITIS CHRONIC
     Dosage: 2 PUFFS AT THE SAME QD;  FORM STRENGTH: 2.5 MCG; FORMULATION: INHALATION SPRAY? ADMINISTRATION CORRE
     Route: 055
     Dates: start: 20170203
  13. DILTIAZEM. [Concomitant]
     Active Substance: DILTIAZEM
     Indication: HYPERTENSION
  14. FLECAINIDE ACETATE. [Concomitant]
     Active Substance: FLECAINIDE ACETATE
     Indication: SUPRAVENTRICULAR TACHYCARDIA
     Dosage: BID;  FORM STRENGTH: 50MG
     Route: 048
     Dates: start: 201701
  15. FERGON [Concomitant]
     Active Substance: FERROUS GLUCONATE
     Indication: ANAEMIA
     Dosage: BID;
     Route: 048
     Dates: start: 2004
  16. GABAPENTIN. [Concomitant]
     Active Substance: GABAPENTIN
     Indication: NEURALGIA
     Dosage: QD;  FORM STRENGTH: 200MG
     Route: 048
     Dates: start: 2015
  17. SINGULAIR [Concomitant]
     Active Substance: MONTELUKAST SODIUM
     Indication: ASTHMA
     Dosage: QD;  FORM STRENGTH: 10MG
     Route: 065
     Dates: start: 2014
  18. AMBIEN [Concomitant]
     Active Substance: ZOLPIDEM TARTRATE
     Indication: INSOMNIA
     Dosage: QD;  FORM STRENGTH: 10MG
     Route: 048
     Dates: start: 2009
  19. BUPROPION. [Concomitant]
     Active Substance: BUPROPION
     Indication: DEPRESSION
     Dosage: QD;  FORM STRENGTH: 150MG
     Route: 048
     Dates: start: 1987
  20. CRESTOR [Concomitant]
     Active Substance: ROSUVASTATIN CALCIUM
     Indication: BLOOD CHOLESTEROL INCREASED
     Dosage: FORM STRENGTH: 5MG
     Route: 048
     Dates: start: 2014
  21. DILTIAZEM. [Concomitant]
     Active Substance: DILTIAZEM
     Indication: SUPRAVENTRICULAR TACHYCARDIA
     Dosage: BID;  FORM STRENGTH: 120MG
     Route: 048
     Dates: start: 201701
  22. CLONOPIN [Concomitant]
     Active Substance: CLONAZEPAM
     Indication: ANXIETY
     Dosage: ONE HALF TABLET OR ONE WHOLE TABLET AS NEEDED;  FORM STRENGTH: 1.0MG
     Route: 065
     Dates: start: 2009
  23. PYRIDIUM [Concomitant]
     Active Substance: PHENAZOPYRIDINE
     Indication: CYSTITIS INTERSTITIAL
     Dosage: QID AS NEEDED;  FORM STRENGTH: 200MG
     Route: 048
     Dates: start: 1974

REACTIONS (4)
  - Bladder discomfort [Not Recovered/Not Resolved]
  - Blood urine present [Recovered/Resolved]
  - Bronchitis [Not Recovered/Not Resolved]
  - Nephrolithiasis [Unknown]

NARRATIVE: CASE EVENT DATE: 20170205
